FAERS Safety Report 11204044 (Version 1)
Quarter: 2015Q2

REPORT INFORMATION
  Report Type: Report from Study
  Country: DE (occurrence: DE)
  Receive Date: 20150619
  Receipt Date: 20150619
  Transmission Date: 20150821
  Serious: Yes (Death)
  Sender: FDA-Public Use
  Company Number: PHHY2015DE073688

PATIENT
  Sex: Male

DRUGS (3)
  1. ICL670A [Suspect]
     Active Substance: DEFERASIROX
     Indication: IRON OVERLOAD
     Dosage: 1500 MG(3X500 MG), QD
     Route: 065
     Dates: start: 20130927, end: 20140126
  2. ICL670A [Suspect]
     Active Substance: DEFERASIROX
     Dosage: 2000 MG (4X 500 MG), QD
     Route: 065
     Dates: start: 20140127
  3. VALPROIC ACID. [Concomitant]
     Active Substance: VALPROIC ACID
     Indication: PRODUCT USED FOR UNKNOWN INDICATION
     Dosage: 900 MG, QD
     Route: 065
     Dates: start: 20131204

REACTIONS (3)
  - Cardiac failure [Fatal]
  - Cardiac tamponade [Fatal]
  - Pericardial effusion [Fatal]

NARRATIVE: CASE EVENT DATE: 20150112
